FAERS Safety Report 6600737-X (Version None)
Quarter: 2010Q1

REPORT INFORMATION
  Report Type: 
  Country: None (occurrence: None)
  Receive Date: 20100223
  Receipt Date: 20100223
  Transmission Date: 20100710
  Serious: No
  Sender: FDA-Public Use
  Company Number: None

PATIENT
  Sex: Male
  Weight: 77.6 kg

DRUGS (2)
  1. PEGASYS 180MCG/0.5ML SHCERING [Suspect]
     Indication: HEPATITIS C
     Dosage: 150 MCG/0.5 ML WEEKLY SQ
     Route: 058
     Dates: start: 20100114, end: 20100219
  2. RIBAVIRIN [Suspect]
     Indication: HEPATITIS C
     Dosage: 1000MG/DAY DAILY PO
     Route: 048
     Dates: start: 20100114, end: 20100219

REACTIONS (1)
  - ANAEMIA [None]
